FAERS Safety Report 5664891-9 (Version None)
Quarter: 2008Q1

REPORT INFORMATION
  Report Type: 
  Country: None (occurrence: None)
  Receive Date: 20080314
  Receipt Date: 20080303
  Transmission Date: 20080703
  Serious: Yes (Life-Threatening, Hospitalization)
  Sender: FDA-Public Use
  Company Number: DE-ELI_LILLY_AND_COMPANY-DE200803000156

PATIENT
  Sex: Female

DRUGS (5)
  1. CYMBALTA [Suspect]
     Indication: DEPRESSION
     Dosage: 30 MG, DAILY (1/D)
     Route: 048
     Dates: start: 20050101, end: 20060101
  2. CYMBALTA [Suspect]
     Dates: start: 20061001, end: 20061101
  3. NOVANOX [Concomitant]
     Dosage: UNK, INTERMITTENT
  4. ZOLPIDEM [Concomitant]
  5. L-THYROXIN [Concomitant]
     Dosage: 125 UG, UNK

REACTIONS (2)
  - ABDOMINAL DISCOMFORT [None]
  - BILIARY CIRRHOSIS PRIMARY [None]
